FAERS Safety Report 13900562 (Version 2)
Quarter: 2018Q4

REPORT INFORMATION
  Report Type: Report from Study
  Country: MX (occurrence: MX)
  Receive Date: 20170824
  Receipt Date: 20181123
  Transmission Date: 20190204
  Serious: Yes (Hospitalization, Other)
  Sender: FDA-Public Use
  Company Number: PHHY2017MX123920

PATIENT
  Sex: Male

DRUGS (1)
  1. STALEVO [Suspect]
     Active Substance: CARBIDOPA\ENTACAPONE\LEVODOPA
     Indication: PRODUCT USED FOR UNKNOWN INDICATION
     Dosage: (CARBIDOPA 50 MG/ ENTACAPONE 200 MG/ LEVODOPA 200 MG)
     Route: 065

REACTIONS (3)
  - Parkinson^s disease [Unknown]
  - Speech disorder [Unknown]
  - Malaise [Unknown]
